FAERS Safety Report 7029378-X (Version None)
Quarter: 2010Q4

REPORT INFORMATION
  Report Type: 
  Country: None (occurrence: None)
  Receive Date: 20101005
  Receipt Date: 20100928
  Transmission Date: 20110411
  Serious: Yes (Death, Hospitalization, Other)
  Sender: FDA-Public Use
  Company Number: PHHY2010ES64281

PATIENT
  Age: 69 Year
  Sex: Female

DRUGS (9)
  1. VOLTAREN [Suspect]
     Dosage: 50 MG
     Route: 048
     Dates: start: 20090101
  2. OMEPRAZOLE [Concomitant]
     Indication: GASTRIC ULCER
     Dosage: 40 MG DAILY
     Route: 048
     Dates: start: 20091101, end: 20100714
  3. PARACETAMOL [Concomitant]
     Dosage: 500 MG, TID
     Route: 048
     Dates: start: 20100101, end: 20100714
  4. ANALGILASA [Concomitant]
     Indication: OSTEOARTHRITIS
     Dosage: UNK
     Dates: start: 20091101, end: 20100714
  5. NOLOTIL [Concomitant]
     Dosage: UNK
     Dates: start: 20091001, end: 20100101
  6. OMACOR [Concomitant]
     Dosage: 2 G DAILY
     Route: 048
     Dates: start: 20100101, end: 20100714
  7. PRITORPLUS [Concomitant]
     Indication: HYPERTENSION
     Dosage: 12.5MG/40 MG DAILY
     Route: 048
     Dates: start: 20100301, end: 20100711
  8. SEGURIL [Concomitant]
     Dosage: 20 MG DAILY
     Route: 048
     Dates: start: 20100101, end: 20100711
  9. ZYLORIC [Concomitant]
     Indication: HYPERURICAEMIA
     Dosage: 30 MG DAILY
     Route: 048
     Dates: start: 20100301, end: 20100714

REACTIONS (16)
  - APLASTIC ANAEMIA [None]
  - ASPIRATION PLEURAL CAVITY [None]
  - ASTHENIA [None]
  - BRONCHOSPASM [None]
  - CHEST PAIN [None]
  - HAEMATOMA [None]
  - HYPOTENSION [None]
  - MULTI-ORGAN FAILURE [None]
  - PANCYTOPENIA [None]
  - PETECHIAE [None]
  - PLEURAL EFFUSION [None]
  - POLYURIA [None]
  - PYREXIA [None]
  - RESPIRATORY DISTRESS [None]
  - RESPIRATORY FAILURE [None]
  - TACHYPNOEA [None]
